FAERS Safety Report 14932567 (Version 2)
Quarter: 2024Q2

REPORT INFORMATION
  Report Type: Report from Study
  Country: US (occurrence: US)
  Receive Date: 20180524
  Receipt Date: 20240412
  Transmission Date: 20240716
  Serious: No
  Sender: FDA-Public Use
  Company Number: US-ACADIA PHARMACEUTICALS INC.-ACA-2018-008397

PATIENT
  Sex: Male

DRUGS (31)
  1. NUPLAZID [Suspect]
     Active Substance: PIMAVANSERIN TARTRATE
     Indication: Parkinson^s disease
     Dosage: 34 MILLIGRAM, QD
     Route: 048
     Dates: start: 202303
  2. NUPLAZID [Suspect]
     Active Substance: PIMAVANSERIN TARTRATE
     Indication: Hallucination
     Dosage: 34 MG, QD
     Route: 065
     Dates: start: 201803
  3. NUPLAZID [Suspect]
     Active Substance: PIMAVANSERIN TARTRATE
     Indication: Delusion
  4. NUPLAZID [Suspect]
     Active Substance: PIMAVANSERIN TARTRATE
     Indication: Parkinson^s disease psychosis
  5. SERTRALINE HYDROCHLORIDE [Concomitant]
     Active Substance: SERTRALINE HYDROCHLORIDE
  6. METFORMIN HYDROCHLORIDE [Concomitant]
     Active Substance: METFORMIN HYDROCHLORIDE
  7. METHOCARBAMOL [Concomitant]
     Active Substance: METHOCARBAMOL
  8. ONGENTYS [Concomitant]
     Active Substance: OPICAPONE
  9. PRAZOSIN HYDROCHLORIDE [Concomitant]
     Active Substance: PRAZOSIN HYDROCHLORIDE
  10. POTASSIUM [Concomitant]
     Active Substance: POTASSIUM
  11. FOLIC ACID [Concomitant]
     Active Substance: FOLIC ACID
  12. ATORVASTATIN CALCIUM [Concomitant]
     Active Substance: ATORVASTATIN CALCIUM
  13. TAMSULOSIN [Concomitant]
     Active Substance: TAMSULOSIN
  14. LIPITOR [Concomitant]
     Active Substance: ATORVASTATIN CALCIUM
  15. STOOL SOFTENER (DOCUSATE) [Concomitant]
     Active Substance: DOCUSATE
  16. MYRBETRIQ [Concomitant]
     Active Substance: MIRABEGRON
  17. CALCIUM CITRATE [Concomitant]
     Active Substance: CALCIUM CITRATE
  18. SUPER MULTIPLE [Concomitant]
  19. MAXEPA [DOCOSAHEXAENOIC ACID;EICOSAPENTAENOIC ACID] [Concomitant]
  20. ALLOPURINOL [Concomitant]
     Active Substance: ALLOPURINOL
  21. CYANOCOBALAMIN [Concomitant]
     Active Substance: CYANOCOBALAMIN
  22. COENZYME Q10 [Concomitant]
     Active Substance: DIETARY SUPPLEMENT\UBIDECARENONE
  23. VITAMINS [Concomitant]
     Active Substance: VITAMINS
  24. GLUCOSAMINE CHONDROITIN [CHONDROITIN SULFATE;GLUCOSAMINE] [Concomitant]
  25. DONEPEZIL [Concomitant]
     Active Substance: DONEPEZIL
  26. CLONAZEPAM [Concomitant]
     Active Substance: CLONAZEPAM
  27. CARBIDOPA LEVODOPA [Concomitant]
     Active Substance: CARBIDOPA\LEVODOPA
  28. OMEPRAZOLE [Concomitant]
     Active Substance: OMEPRAZOLE
  29. MEMANTINE HYDROCHLORIDE [Concomitant]
     Active Substance: MEMANTINE HYDROCHLORIDE
  30. NAPROXEN [Concomitant]
     Active Substance: NAPROXEN
  31. CELECOXIB [Concomitant]
     Active Substance: CELECOXIB

REACTIONS (2)
  - Muscle spasms [Unknown]
  - Constipation [Unknown]
